FAERS Safety Report 4757417-5 (Version None)
Quarter: 2005Q3

REPORT INFORMATION
  Report Type: 
  Country: None (occurrence: None)
  Receive Date: 20050831
  Receipt Date: 20050818
  Transmission Date: 20060218
  Serious: Yes (Hospitalization, Disabling)
  Sender: FDA-Public Use
  Company Number: 200517388GDDC

PATIENT
  Age: 72 Year
  Sex: Male

DRUGS (6)
  1. DOCETAXEL [Suspect]
     Indication: PROSTATE CANCER
     Route: 042
     Dates: start: 20050704, end: 20050704
  2. NEORECORMON [Suspect]
     Indication: PROSTATE CANCER
     Dosage: DOSE: UNK
     Dates: start: 20050701
  3. PREDNISONE TAB [Concomitant]
  4. ORADEXON TAB [Concomitant]
     Route: 042
     Dates: start: 20050704
  5. KYTRIL [Concomitant]
     Route: 042
     Dates: start: 20050704
  6. PROCREN [Concomitant]

REACTIONS (4)
  - MYELITIS [None]
  - PAIN IN EXTREMITY [None]
  - PARAPARESIS [None]
  - SPINAL CORD INFARCTION [None]
